FAERS Safety Report 9695336 (Version 1)
Quarter: 2013Q4

REPORT INFORMATION
  Report Type: Spontaneous
  Country: US (occurrence: None)
  Receive Date: 20131118
  Receipt Date: 20131118
  Transmission Date: 20140711
  Serious: Yes (Other)
  Sender: FDA-Public Use
  Company Number: None

PATIENT
  Age: 59 Year
  Sex: Female
  Weight: 190 kg

DRUGS (1)
  1. HALIPERIDOL [Suspect]
     Dosage: GEODONE
     Dates: start: 20131024

REACTIONS (1)
  - Unevaluable event [None]
